FAERS Safety Report 6443849-6 (Version None)
Quarter: 2009Q4

REPORT INFORMATION
  Report Type: 
  Country: None (occurrence: None)
  Receive Date: 20091113
  Receipt Date: 20091029
  Transmission Date: 20100525
  Serious: Yes (Life-Threatening)
  Sender: FDA-Public Use
  Company Number: 1-20401293

PATIENT
  Age: 64 Year
  Sex: Male

DRUGS (6)
  1. FENTANYL [Suspect]
     Indication: ANAESTHESIA
     Dosage: 0.3 MG
     Dates: start: 20090923, end: 20090923
  2. PENTOTHAL [Suspect]
     Indication: ANAESTHESIA
     Dosage: 350 MG
     Dates: start: 20090923, end: 20090923
  3. PAVULON [Suspect]
     Indication: ANAESTHESIA
     Dosage: 8 MG
     Dates: start: 20090923, end: 20090923
  4. DIAZEPAM [Suspect]
     Dosage: 10 MG
     Dates: start: 20090923, end: 20090923
  5. CEFALOTIN [Suspect]
     Dosage: 2 GM
     Dates: start: 20090923, end: 20090923
  6. CHLORHEXIDINE GLUCONATE [Concomitant]

REACTIONS (3)
  - BLOOD PRESSURE DECREASED [None]
  - BRONCHOSPASM [None]
  - POST PROCEDURAL COMPLICATION [None]
